FAERS Safety Report 22066849 (Version 1)
Quarter: 2023Q1

REPORT INFORMATION
  Report Type: Spontaneous
  Country: JP (occurrence: JP)
  Receive Date: 20230306
  Receipt Date: 20230306
  Transmission Date: 20230418
  Serious: Yes (Other)
  Sender: FDA-Public Use
  Company Number: JP-002147023-NVSJ2023JP003888

PATIENT
  Sex: Male

DRUGS (1)
  1. GLYCOPYRROLATE\INDACATEROL\MOMETASONE FUROATE [Suspect]
     Active Substance: GLYCOPYRROLATE\INDACATEROL\MOMETASONE FUROATE
     Indication: Product used for unknown indication
     Dosage: 1DF:INDACATEROL150UG?GLYCOPYRRONIUM50UG?MOMETASONE FUROATE UNK, QD,LASTS 24 HOURS

REACTIONS (1)
  - Dyspnoea [Unknown]
